APPROVED DRUG PRODUCT: LETROZOLE
Active Ingredient: LETROZOLE
Strength: 2.5MG
Dosage Form/Route: TABLET;ORAL
Application: A202716 | Product #001
Applicant: CHARTWELL RX SCIENCES LLC
Approved: May 16, 2013 | RLD: No | RS: No | Type: DISCN